FAERS Safety Report 5237637-6 (Version None)
Quarter: 2007Q1

REPORT INFORMATION
  Report Type: 
  Country: None (occurrence: None)
  Receive Date: 20070214
  Receipt Date: 20070205
  Transmission Date: 20070707
  Serious: Yes (Disabling)
  Sender: FDA-Public Use
  Company Number: FR-BAYER-200611096BFR

PATIENT
  Age: 46 Year
  Sex: Female
  Weight: 63 kg

DRUGS (7)
  1. CIPROFLOXACIN [Suspect]
     Indication: BRONCHITIS
     Dosage: TOTAL DAILY DOSE: 1 G  UNIT DOSE: 500 MG
     Route: 048
     Dates: start: 20020318
  2. MOXIFLOXACIN HYDROCHLORIDE [Suspect]
     Indication: BRONCHITIS
     Dosage: TOTAL DAILY DOSE: 400 MG  UNIT DOSE: 400 MG
     Route: 048
     Dates: start: 20041129
  3. MOXIFLOXACIN HYDROCHLORIDE [Suspect]
     Dosage: TOTAL DAILY DOSE: 400 MG  UNIT DOSE: 400 MG
     Route: 048
     Dates: start: 20050928
  4. MOXIFLOXACIN HYDROCHLORIDE [Suspect]
     Dosage: TOTAL DAILY DOSE: 400 MG  UNIT DOSE: 400 MG
     Route: 048
     Dates: start: 20061012
  5. MOXIFLOXACIN HYDROCHLORIDE [Suspect]
     Dosage: TOTAL DAILY DOSE: 400 MG  UNIT DOSE: 400 MG
     Route: 048
     Dates: start: 20041122
  6. MOXIFLOXACIN HYDROCHLORIDE [Suspect]
     Dosage: TOTAL DAILY DOSE: 400 MG  UNIT DOSE: 400 MG
     Route: 048
     Dates: start: 20050526
  7. OFLOCET [Concomitant]
     Indication: BRONCHITIS

REACTIONS (2)
  - SYSTEMIC LUPUS ERYTHEMATOSUS [None]
  - TENDON PAIN [None]
